FAERS Safety Report 20308780 (Version 1)
Quarter: 2022Q1

REPORT INFORMATION
  Report Type: Spontaneous
  Country: US (occurrence: None)
  Receive Date: 20220106
  Receipt Date: 20220106
  Transmission Date: 20220423
  Serious: No
  Sender: FDA-Public Use
  Company Number: None

PATIENT
  Age: 32 Year
  Sex: Male
  Weight: 80.1 kg

DRUGS (1)
  1. ARISTADA [Suspect]
     Active Substance: ARIPIPRAZOLE LAUROXIL
     Indication: Schizoaffective disorder bipolar type
     Dosage: EVERY 6 WEEKS
     Route: 030
     Dates: start: 20211221

REACTIONS (2)
  - Needle issue [None]
  - Incorrect dose administered [None]

NARRATIVE: CASE EVENT DATE: 20220106
